FAERS Safety Report 7300903-4 (Version None)
Quarter: 2011Q1

REPORT INFORMATION
  Report Type: 
  Country: None (occurrence: None)
  Receive Date: 20110103
  Receipt Date: 20100108
  Transmission Date: 20110831
  Serious: Yes (Hospitalization)
  Sender: FDA-Public Use
  Company Number: US-004123

PATIENT
  Age: 59 Year
  Sex: Male

DRUGS (3)
  1. MULTIHANCE [Suspect]
     Indication: NUCLEAR MAGNETIC RESONANCE IMAGING
     Dosage: 14ML ONCE
     Dates: start: 20090508, end: 20090508
  2. MULTIHANCE [Suspect]
     Indication: URINARY TRACT DISORDER
     Dosage: 14ML ONCE
     Dates: start: 20090508, end: 20090508
  3. MULTIHANCE [Suspect]
     Indication: GALLBLADDER CANCER METASTATIC
     Dosage: 14ML ONCE
     Dates: start: 20090508, end: 20090508

REACTIONS (1)
  - ANAPHYLACTOID REACTION [None]
